FAERS Safety Report 6232635-8 (Version None)
Quarter: 2009Q2

REPORT INFORMATION
  Report Type: 
  Country: None (occurrence: None)
  Receive Date: 20090615
  Receipt Date: 20090615
  Transmission Date: 20091009
  Serious: Yes (Other)
  Sender: FDA-Public Use
  Company Number: None

PATIENT
  Sex: Female
  Weight: 93.441 kg

DRUGS (6)
  1. TRILAFON [Suspect]
     Indication: SCHIZOAFFECTIVE DISORDER
     Dosage: 8MG PO QAM, 16MG PO QPM
     Route: 048
  2. DEPAKOTE ER [Concomitant]
  3. LISINOPRIL [Concomitant]
  4. LASIX [Concomitant]
  5. RESTORIL [Concomitant]
  6. QUETIAPINE [Concomitant]

REACTIONS (2)
  - EXTRAPYRAMIDAL DISORDER [None]
  - TARDIVE DYSKINESIA [None]
